FAERS Safety Report 16886039 (Version 1)
Quarter: 2019Q4

REPORT INFORMATION
  Report Type: Spontaneous
  Country: NL (occurrence: DE)
  Receive Date: 20191004
  Receipt Date: 20191004
  Transmission Date: 20200122
  Serious: Yes (Other)
  Sender: FDA-Public Use
  Company Number: DE-FRESENIUS KABI-FK201910824

PATIENT
  Age: 48 Year
  Sex: Male
  Weight: 60 kg

DRUGS (7)
  1. PANTOPRAZOLE [Concomitant]
     Active Substance: PANTOPRAZOLE
     Indication: PRODUCT USED FOR UNKNOWN INDICATION
     Dosage: DAILY DOSE: 40 MG MILLGRAM(S) EVERY DAYS
     Route: 042
  2. PIPERACILLIN/TAZOBACTAM [Concomitant]
     Indication: STREPTOCOCCAL INFECTION
     Dosage: DAILY DOSE: 4.5 G GRAM(S) EVERY DAYS
     Route: 042
     Dates: start: 20190721, end: 20190807
  3. SUFENTANIL [Concomitant]
     Active Substance: SUFENTANIL
     Indication: ANALGESIC THERAPY
     Dosage: DAILY DOSE: 15 UG MICROGRAM(S) EVERY HOURS
     Route: 042
     Dates: start: 20190731, end: 20190803
  4. METAMIZOLE [Concomitant]
     Active Substance: METAMIZOLE
     Indication: ANALGESIC THERAPY
     Dosage: DAILY DOSE: 4 G GRAM(S) EVERY DAYS
     Route: 042
     Dates: start: 20190731
  5. VANCOMYCIN (MANUFACTURER UNKNOWN) [Suspect]
     Active Substance: VANCOMYCIN
     Indication: INFECTIOUS PLEURAL EFFUSION
     Dosage: DAILY DOSE: 2 G GRAM(S) EVERY DAYS 2 SEPARATED DOSES
     Route: 042
     Dates: start: 20190731, end: 20190802
  6. NALOXEGOL [Concomitant]
     Active Substance: NALOXEGOL
     Indication: PRODUCT USED FOR UNKNOWN INDICATION
     Dosage: DAILY DOSE: 25 MG MILLGRAM(S) EVERY DAYS
     Route: 042
  7. PROPOFOL. [Concomitant]
     Active Substance: PROPOFOL
     Indication: SEDATIVE THERAPY
     Dosage: DAILY DOSE: 150 MG MILLGRAM(S) EVERY HOURS
     Route: 042
     Dates: start: 20190731, end: 20190801

REACTIONS (3)
  - Acute kidney injury [Not Recovered/Not Resolved]
  - Drug level increased [Not Recovered/Not Resolved]
  - Oliguria [Not Recovered/Not Resolved]

NARRATIVE: CASE EVENT DATE: 20190802
